FAERS Safety Report 15251376 (Version 2)
Quarter: 2018Q3

REPORT INFORMATION
  Report Type: Spontaneous
  Country: US (occurrence: US)
  Receive Date: 20180807
  Receipt Date: 20180910
  Transmission Date: 20181010
  Serious: Yes (Other)
  Sender: FDA-Public Use
  Company Number: US-ASTRAZENECA-2018SE95856

PATIENT
  Sex: Female

DRUGS (5)
  1. BRILINTA [Suspect]
     Active Substance: TICAGRELOR
     Indication: MYOCARDIAL INFARCTION
     Dosage: TWO TIMES A DAY
     Route: 048
     Dates: start: 2018
  2. ASPIRIN. [Concomitant]
     Active Substance: ASPIRIN
  3. CHOLESTEROL [Concomitant]
     Active Substance: CHOLESTEROL
  4. BRILINTA [Suspect]
     Active Substance: TICAGRELOR
     Indication: STENT PLACEMENT
     Dosage: TWO TIMES A DAY
     Route: 048
     Dates: start: 2018
  5. LIPITOR [Concomitant]
     Active Substance: ATORVASTATIN CALCIUM

REACTIONS (9)
  - Asthenia [Unknown]
  - Fatigue [Unknown]
  - Stress [Not Recovered/Not Resolved]
  - Dizziness [Unknown]
  - Myocardial infarction [Unknown]
  - Drug dose omission [Unknown]
  - Dysuria [Unknown]
  - Joint injury [Not Recovered/Not Resolved]
  - Diarrhoea [Unknown]

NARRATIVE: CASE EVENT DATE: 20180905
